FAERS Safety Report 24603970 (Version 2)
Quarter: 2024Q4

REPORT INFORMATION
  Report Type: Spontaneous
  Country: US (occurrence: US)
  Receive Date: 20241111
  Receipt Date: 20241121
  Transmission Date: 20250115
  Serious: Yes (Other)
  Sender: SANOFI AVENTIS
  Company Number: US-SANOFI-02296899

PATIENT
  Age: 49 Year
  Sex: Male

DRUGS (2)
  1. LEMTRADA [Suspect]
     Active Substance: ALEMTUZUMAB
     Indication: Multiple sclerosis
     Dosage: 12 MG, QD
     Route: 042
     Dates: start: 2011, end: 2011
  2. LEMTRADA [Suspect]
     Active Substance: ALEMTUZUMAB
     Dosage: UNK
     Route: 065
     Dates: start: 2012, end: 2012

REACTIONS (7)
  - Endocrine ophthalmopathy [Unknown]
  - Dry eye [Unknown]
  - Malignant melanoma [Recovered/Resolved]
  - Graves^ disease [Unknown]
  - Heart rate increased [Unknown]
  - Weight decreased [Unknown]
  - Alopecia [Unknown]

NARRATIVE: CASE EVENT DATE: 20160101
